FAERS Safety Report 9774254 (Version 1)
Quarter: 2013Q4

REPORT INFORMATION
  Report Type: Spontaneous
  Country: FR (occurrence: FR)
  Receive Date: 20131220
  Receipt Date: 20131220
  Transmission Date: 20140711
  Serious: Yes (Hospitalization)
  Sender: FDA-Public Use
  Company Number: FR-JNJFOC-20131209484

PATIENT
  Age: 79 Year
  Sex: Male

DRUGS (8)
  1. XARELTO [Suspect]
     Indication: PRODUCT USED FOR UNKNOWN INDICATION
     Route: 048
     Dates: start: 201303, end: 20131025
  2. LASILIX [Concomitant]
     Route: 065
  3. DIFFU K [Concomitant]
     Dosage: 2 GEL
     Route: 065
  4. TRIATEC [Concomitant]
     Route: 065
  5. SOTALEX [Concomitant]
     Route: 065
  6. TAHOR [Concomitant]
     Route: 065
  7. KARDEGIC [Concomitant]
     Route: 065
  8. INEXIUM [Concomitant]
     Route: 065

REACTIONS (1)
  - Anaemia [Unknown]
